FAERS Safety Report 15656298 (Version 1)
Quarter: 2018Q4

REPORT INFORMATION
  Report Type: Report from Study
  Country: US (occurrence: US)
  Receive Date: 20181126
  Receipt Date: 20181126
  Transmission Date: 20190205
  Serious: Yes (Other)
  Sender: FDA-Public Use
  Company Number: US-AMGEN-USASL2018168357

PATIENT
  Age: 39 Year
  Sex: Female

DRUGS (1)
  1. AIMOVIG [Suspect]
     Active Substance: ERENUMAB-AOOE
     Indication: MIGRAINE
     Dosage: 140 MG, QMO
     Route: 065
     Dates: start: 2018

REACTIONS (9)
  - Trigeminal neuralgia [Unknown]
  - Tongue ulceration [Recovered/Resolved]
  - Vomiting [Unknown]
  - Swollen tongue [Recovered/Resolved]
  - Nausea [Unknown]
  - Intentional product misuse [Unknown]
  - Mobility decreased [Recovered/Resolved]
  - Haemorrhage [Unknown]
  - Dizziness [Recovered/Resolved]

NARRATIVE: CASE EVENT DATE: 2018
